FAERS Safety Report 5859691-0 (Version None)
Quarter: 2008Q3

REPORT INFORMATION
  Report Type: 
  Country: None (occurrence: None)
  Receive Date: 20080827
  Receipt Date: 20080820
  Transmission Date: 20090109
  Serious: Yes (Hospitalization)
  Sender: FDA-Public Use
  Company Number: IN-WATSON-2008-05019

PATIENT
  Age: 42 Year
  Sex: Male

DRUGS (2)
  1. PENTAZOCINE + NALOXONE (WATSON LABORATORIES) [Suspect]
     Indication: PANCREATITIS
     Dosage: 60 MG OF PENTAZOCINE DAILY
     Route: 030
  2. PROMETHAZINE (WATSON LABORATORIES) [Suspect]
     Indication: PANCREATITIS
     Dosage: 2 AMPULES DAILY IN DIVIDED DOSES
     Route: 065

REACTIONS (3)
  - CALCIFICATION OF MUSCLE [None]
  - DRUG ABUSE [None]
  - MUSCLE FIBROSIS [None]
